FAERS Safety Report 9292384 (Version 2)
Quarter: 2013Q3

REPORT INFORMATION
  Report Type: Report from Study
  Country: NL (occurrence: NL)
  Receive Date: 20130516
  Receipt Date: 20130705
  Transmission Date: 20140515
  Serious: Yes (Other)
  Sender: FDA-Public Use
  Company Number: NL-GENZYME-MOZO-1000864

PATIENT
  Age: 58 Year
  Sex: Male
  Weight: 83 kg

DRUGS (5)
  1. MOZOBIL [Suspect]
     Indication: HAEMATOPOIETIC STEM CELL MOBILISATION
     Dosage: 24 MG, ONCE
     Route: 042
     Dates: start: 20130501, end: 20130501
  2. LORAZEPAM [Concomitant]
     Indication: TENSION
     Dosage: 10 MG, UNK
     Route: 048
     Dates: start: 20130501, end: 20130501
  3. ACO [Concomitant]
     Indication: APHERESIS
     Dosage: 750 ML, UNK
     Route: 042
     Dates: start: 20130501, end: 20130501
  4. CALCIUM GLUCONATE [Concomitant]
     Indication: APHERESIS
     Dosage: 10 ML, UNK
     Route: 042
     Dates: start: 20130501, end: 20130501
  5. SODIUM CHLORIDE [Concomitant]
     Indication: APHERESIS
     Dosage: 1000 ML, UNK
     Route: 042
     Dates: start: 20130501, end: 20130501

REACTIONS (1)
  - Thrombosis in device [Recovered/Resolved]
